FAERS Safety Report 6180311-2 (Version None)
Quarter: 2009Q2

REPORT INFORMATION
  Report Type: 
  Country: None (occurrence: None)
  Receive Date: 20090504
  Receipt Date: 20090504
  Transmission Date: 20091009
  Serious: No
  Sender: FDA-Public Use
  Company Number: None

PATIENT
  Sex: Female
  Weight: 55.45 kg

DRUGS (3)
  1. CELEXA [Suspect]
     Dosage: 10MG TABLET 10 MG QD
     Route: 048
     Dates: start: 20090402, end: 20090501
  2. WELLBUTRIN SR [Concomitant]
  3. ZITHROMAX [Concomitant]

REACTIONS (1)
  - SEXUAL DYSFUNCTION [None]
